FAERS Safety Report 7531901-3 (Version None)
Quarter: 2011Q2

REPORT INFORMATION
  Report Type: 
  Country: None (occurrence: None)
  Receive Date: 20110608
  Receipt Date: 20110527
  Transmission Date: 20111010
  Serious: Yes (Hospitalization)
  Sender: FDA-Public Use
  Company Number: JP-ELI_LILLY_AND_COMPANY-JP200912003534

PATIENT
  Sex: Male
  Weight: 49 kg

DRUGS (8)
  1. GEMCITABINE HYDROCHLORIDE [Suspect]
     Indication: PANCREATIC CARCINOMA NON-RESECTABLE
     Dosage: 1000 MG/M2, OTHER
     Route: 042
     Dates: start: 20090701, end: 20091125
  2. NOVOLIN R [Concomitant]
     Indication: DIABETES MELLITUS
     Dosage: 16 ML, DAILY (1/D)
     Route: 058
     Dates: start: 20090615
  3. OXYCONTIN [Concomitant]
     Indication: PAIN
     Dosage: 40 MG, DAILY (1/D)
     Route: 048
     Dates: start: 20090615
  4. GANATON [Concomitant]
     Indication: DECREASED APPETITE
     Dosage: 150 MG, DAILY (1/D)
     Route: 048
     Dates: start: 20090409
  5. NORVASC [Concomitant]
     Indication: HYPERTENSION
     Dosage: 5 MG, DAILY (1/D)
     Route: 048
     Dates: start: 20041105
  6. DIOVAN [Concomitant]
     Indication: HYPERTENSION
     Dosage: 80 MG, DAILY (1/D)
     Route: 048
     Dates: start: 20041105
  7. RABEPRAZOLE SODIUM [Concomitant]
     Indication: DYSPEPSIA
     Dosage: 10 MG, DAILY (1/D)
     Route: 048
     Dates: start: 20090409
  8. BLINDED THERAPY [Suspect]
     Indication: PANCREATIC CARCINOMA NON-RESECTABLE
     Dosage: 2 ML, WEEKLY (1/W)
     Route: 058
     Dates: start: 20090701, end: 20091202

REACTIONS (1)
  - HYPOGLYCAEMIC UNCONSCIOUSNESS [None]
